FAERS Safety Report 8463624-0 (Version None)
Quarter: 2012Q2

REPORT INFORMATION
  Report Type: 
  Country: None (occurrence: None)
  Receive Date: 20120625
  Receipt Date: 20120619
  Transmission Date: 20120825
  Serious: Yes (Death, Other)
  Sender: FDA-Public Use
  Company Number: VE-PFIZER INC-2012127024

PATIENT
  Age: 73 Year
  Sex: Male

DRUGS (1)
  1. LYRICA [Suspect]
     Indication: SCIATIC NERVE NEUROPATHY
     Dosage: UNK
     Route: 048
     Dates: start: 20120101

REACTIONS (1)
  - CEREBROVASCULAR ACCIDENT [None]
